FAERS Safety Report 6144344-4 (Version None)
Quarter: 2009Q2

REPORT INFORMATION
  Report Type: 
  Country: None (occurrence: None)
  Receive Date: 20090406
  Receipt Date: 20090325
  Transmission Date: 20091009
  Serious: Yes (Hospitalization)
  Sender: FDA-Public Use
  Company Number: CH-PFIZER INC-2009189049

PATIENT

DRUGS (6)
  1. LYRICA [Suspect]
     Dosage: 75 MG, UNK
     Route: 048
  2. TIZANIDINE HCL [Concomitant]
  3. EFFEXOR [Concomitant]
  4. OLFEN [Concomitant]
  5. LISINOPRIL [Concomitant]
  6. ALLOPURINOL [Concomitant]

REACTIONS (1)
  - HEPATITIS [None]
